FAERS Safety Report 8838480 (Version 1)
Quarter: 2012Q4

REPORT INFORMATION
  Report Type: 
  Country: US (occurrence: US)
  Receive Date: 20121012
  Receipt Date: 20121012
  Transmission Date: 20130627
  Serious: Yes (Hospitalization, Other)
  Sender: FDA-Public Use
  Company Number: US-ASTRAZENECA-2012SE65618

PATIENT
  Age: 73 Year
  Sex: Male
  Weight: 90.3 kg

DRUGS (9)
  1. LISINOPRIL [Suspect]
     Route: 048
  2. METOPROLOL [Suspect]
     Route: 048
  3. BRILINTA [Suspect]
     Route: 048
  4. SPIRONOLACTONE [Concomitant]
  5. ASPIRIN [Concomitant]
     Dosage: FOR THREE MONTHS
  6. ASPIRIN [Concomitant]
  7. ATORVASTATIN [Concomitant]
  8. IBUPROFEN [Concomitant]
  9. PLAVIX [Concomitant]
     Dosage: 150 MG DAILY THEN 75 ,G DAILY AT LEAT 12 MONTHS
     Route: 048

REACTIONS (19)
  - Pulmonary hypertension [Unknown]
  - Acute coronary syndrome [Unknown]
  - Acute myocardial infarction [Unknown]
  - Acute myocardial infarction [Unknown]
  - Coronary artery disease [Unknown]
  - Left ventricular dysfunction [Unknown]
  - Coronary artery stenosis [Unknown]
  - Bladder cancer [Unknown]
  - Angina unstable [Unknown]
  - Type 2 diabetes mellitus [Unknown]
  - Dyslipidaemia [Unknown]
  - Barrett^s oesophagus [Unknown]
  - Aortic valve sclerosis [Unknown]
  - Aortic valve incompetence [Unknown]
  - Mitral valve incompetence [Unknown]
  - Ventricular extrasystoles [Unknown]
  - Angina pectoris [Unknown]
  - Chest discomfort [Unknown]
  - Anxiety [Unknown]
